FAERS Safety Report 9420222 (Version 1)
Quarter: 2013Q3

REPORT INFORMATION
  Report Type: Spontaneous
  Country: US (occurrence: US)
  Receive Date: 20130725
  Receipt Date: 20130725
  Transmission Date: 20140515
  Serious: No
  Sender: FDA-Public Use
  Company Number: US-PFIZER INC-2013216152

PATIENT
  Age: 90 Year
  Sex: Male
  Weight: 86.17 kg

DRUGS (3)
  1. DOXAZOSIN MESILATE [Suspect]
     Indication: PROSTATIC DISORDER
     Dosage: 10 MG, DAILY
     Route: 048
     Dates: start: 201306
  2. DOXAZOSIN MESILATE [Suspect]
     Indication: DYSURIA
  3. XALATAN [Concomitant]
     Indication: GLAUCOMA
     Dosage: UNK
     Route: 047

REACTIONS (3)
  - Drug dose omission [Unknown]
  - Drug ineffective [Unknown]
  - Drug hypersensitivity [Not Recovered/Not Resolved]
